FAERS Safety Report 11696295 (Version 1)
Quarter: 2015Q4

REPORT INFORMATION
  Report Type: Spontaneous
  Country: JP (occurrence: JP)
  Receive Date: 20151104
  Receipt Date: 20151104
  Transmission Date: 20160304
  Serious: Yes (Hospitalization)
  Sender: FDA-Public Use
  Company Number: JP-WARNER CHILCOTT, LLC-1043722

PATIENT
  Age: 82 Year
  Sex: Female

DRUGS (7)
  1. ACTONEL [Suspect]
     Active Substance: RISEDRONATE SODIUM
     Indication: OSTEOPOROSIS
     Route: 048
     Dates: start: 20130817, end: 20150828
  2. SOLITA-T3 [Concomitant]
     Active Substance: POTASSIUM CHLORIDE\SODIUM CHLORIDE\SODIUM LACTATE
  3. OPALMON [Concomitant]
     Active Substance: LIMAPROST
  4. TERNELIN [Concomitant]
     Active Substance: TIZANIDINE
  5. AMLODIN [Concomitant]
     Active Substance: AMLODIPINE BESYLATE
  6. CATACLOT [Concomitant]
  7. ISEPACIN [Concomitant]

REACTIONS (8)
  - Osteomyelitis [Not Recovered/Not Resolved]
  - Bone disorder [None]
  - Metaplasia [Unknown]
  - Pain in jaw [Unknown]
  - Atypical femur fracture [Not Recovered/Not Resolved]
  - Bone marrow disorder [None]
  - Pyrexia [Unknown]
  - Pain in extremity [Recovered/Resolved]
